FAERS Safety Report 20810134 (Version 1)
Quarter: 2022Q2

REPORT INFORMATION
  Report Type: Spontaneous
  Country: US (occurrence: US)
  Receive Date: 20220510
  Receipt Date: 20220510
  Transmission Date: 20220721
  Serious: No
  Sender: FDA-Public Use
  Company Number: US-OYSTER POINT PHARMA, INC.-2022OYS00102

PATIENT
  Age: 32 Year
  Sex: Female
  Weight: 65.76 kg

DRUGS (3)
  1. TYRVAYA [Suspect]
     Active Substance: VARENICLINE TARTRATE
     Indication: Dry eye
     Dosage: 1 SPRAY IN EACH NOSTRIL, ONCE
     Route: 045
     Dates: start: 20220201, end: 20220201
  2. ALBUTEROL [Concomitant]
     Active Substance: ALBUTEROL
  3. BREO ELLIPTA [Concomitant]
     Active Substance: FLUTICASONE FUROATE\VILANTEROL TRIFENATATE

REACTIONS (7)
  - Erythema [Recovered/Resolved]
  - Pruritus [Recovered/Resolved]
  - Swelling of eyelid [Recovered/Resolved]
  - Ear pruritus [Recovered/Resolved]
  - Eye pruritus [Recovered/Resolved]
  - Swelling face [Recovered/Resolved]
  - Throat irritation [Recovered/Resolved]

NARRATIVE: CASE EVENT DATE: 20220201
